FAERS Safety Report 10211000 (Version 1)
Quarter: 2014Q2

REPORT INFORMATION
  Report Type: Spontaneous
  Country: IN (occurrence: None)
  Receive Date: 20140528
  Receipt Date: 20140528
  Transmission Date: 20141212
  Serious: Yes (Death)
  Sender: FDA-Public Use
  Company Number: AUR-APL-2014-06079

PATIENT
  Age: 63 Year
  Sex: Male

DRUGS (6)
  1. METOPROLOL [Suspect]
     Indication: VENTRICULAR TACHYCARDIA
  2. TAMSULOSIN (TAMSULOSIN) [Concomitant]
  3. ZOLADEX (GOSERELIN) [Concomitant]
  4. TOLVAPTAN (TOLVAPTAN) [Concomitant]
  5. LEVOTHYROXINE (LEVOTHYROXINE) [Concomitant]
  6. LOSARTAN (LOSARTAN) [Concomitant]

REACTIONS (8)
  - Syncope [None]
  - Ventricular tachycardia [None]
  - Fatigue [None]
  - Disorientation [None]
  - Haemoglobin decreased [None]
  - Blood sodium decreased [None]
  - Hyponatraemia [None]
  - Inappropriate antidiuretic hormone secretion [None]
